FAERS Safety Report 22354865 (Version 1)
Quarter: 2023Q2

REPORT INFORMATION
  Report Type: Spontaneous
  Country: US (occurrence: US)
  Receive Date: 20230523
  Receipt Date: 20230523
  Transmission Date: 20230722
  Serious: No
  Sender: FDA-Public Use
  Company Number: US-PFIZER INC-202300196401

PATIENT
  Age: 29 Year
  Sex: Male

DRUGS (3)
  1. EUCRISA [Suspect]
     Active Substance: CRISABOROLE
     Indication: Eczema
     Dosage: UNK
  2. EUCRISA [Suspect]
     Active Substance: CRISABOROLE
     Indication: Dermatitis atopic
  3. EUCRISA [Suspect]
     Active Substance: CRISABOROLE
     Indication: Pruritus

REACTIONS (1)
  - Treatment failure [Unknown]
